FAERS Safety Report 8090219-3 (Version None)
Quarter: 2012Q1

REPORT INFORMATION
  Report Type: 
  Country: None (occurrence: None)
  Receive Date: 20120129
  Receipt Date: 20111227
  Transmission Date: 20120608
  Serious: No
  Sender: FDA-Public Use
  Company Number: US-ABBOTT-11P-163-0855745-00

PATIENT
  Age: 60 Year
  Sex: Female

DRUGS (20)
  1. NOVALOG FLEX PEN [Concomitant]
     Indication: DIABETES MELLITUS
     Dosage: SLIDING SCALE
  2. LANTUS [Concomitant]
     Indication: PRODUCT USED FOR UNKNOWN INDICATION
     Dosage: AT BEDTIME
  3. LORAZEPAM [Concomitant]
     Indication: POST-TRAUMATIC STRESS DISORDER
     Dosage: 1 MILLIGRAM: ONE IN AM 2 AT HS
  4. LORAZEPAM [Concomitant]
     Indication: PANIC REACTION
  5. ZOLPIDEM [Concomitant]
     Indication: INSOMNIA
     Dosage: AT BEDTIME
  6. VITAMIN B-12 [Concomitant]
     Indication: VITAMIN B12 DECREASED
     Dosage: WEEKLY
  7. QUINAPRIL [Concomitant]
     Indication: HYPERTENSION
     Dosage: DAILY
  8. METOPROLOL TARTRATE [Concomitant]
     Indication: HYPERTENSION
  9. LORAZEPAM [Concomitant]
     Indication: ANXIETY
  10. HUMIRA [Suspect]
     Indication: CROHN'S DISEASE
  11. CYMBALTA [Concomitant]
     Indication: DEPRESSION
     Dosage: 2 IN THE MORNING, 1 AT BEDTIME
  12. CRESTOR [Concomitant]
     Indication: BLOOD CHOLESTEROL INCREASED
     Dosage: AT BEDTIME
  13. FOLIC ACID [Concomitant]
     Indication: VITAMIN SUPPLEMENTATION
     Dosage: DAILY
  14. PLAVIX [Concomitant]
     Indication: CEREBROVASCULAR ACCIDENT PROPHYLAXIS
     Dosage: DAILY
  15. VITAMIN D [Concomitant]
     Indication: VITAMIN SUPPLEMENTATION
     Dosage: DAILY
  16. ASACOL [Concomitant]
     Indication: CROHN'S DISEASE
     Dosage: 4 TABS BID
  17. ASPIRIN [Concomitant]
     Indication: PROPHYLAXIS
     Dosage: DAILY
  18. ACIPHEX [Concomitant]
     Indication: GASTROOESOPHAGEAL REFLUX DISEASE
  19. LEVOTHYROXINE SODIUM [Concomitant]
     Indication: BLOOD THYROID STIMULATING HORMONE DECREASED
     Dosage: DAILY
  20. SEROQUEL [Concomitant]
     Indication: POST-TRAUMATIC STRESS DISORDER
     Dosage: 50MG: 2 TABS AT DINNER

REACTIONS (5)
  - CHILLS [None]
  - INFLUENZA [None]
  - LIMB INJURY [None]
  - PYREXIA [None]
  - NAUSEA [None]
